FAERS Safety Report 11561671 (Version 2)
Quarter: 2015Q4

REPORT INFORMATION
  Report Type: Spontaneous
  Country: US (occurrence: US)
  Receive Date: 20150928
  Receipt Date: 20151209
  Transmission Date: 20160304
  Serious: Yes (Life-Threatening, Hospitalization)
  Sender: FDA-Public Use
  Company Number: US-DEP_12670_2015

PATIENT
  Age: 73 Year
  Sex: Female

DRUGS (1)
  1. GRALISE [Suspect]
     Active Substance: GABAPENTIN
     Indication: PRODUCT USED FOR UNKNOWN INDICATION
     Dosage: SAMPLE PACK; TOOK 2 PILLS, FREQUENCY UNKNOWN
     Route: 048
     Dates: start: 20150904, end: 20150904

REACTIONS (3)
  - Erosive oesophagitis [Unknown]
  - Tracheal obstruction [Unknown]
  - Choking [Recovered/Resolved]

NARRATIVE: CASE EVENT DATE: 20150904
